FAERS Safety Report 5123948-1 (Version None)
Quarter: 2006Q3

REPORT INFORMATION
  Report Type: 
  Country: None (occurrence: None)
  Receive Date: 20060811
  Receipt Date: 20060620
  Transmission Date: 20061208
  Serious: No
  Sender: FDA-Public Use
  Company Number: S06-USA-02417-01

PATIENT
  Age: 76 Year
  Sex: Female

DRUGS (11)
  1. NAMENDA [Suspect]
     Indication: DEMENTIA ALZHEIMER'S TYPE
     Dosage: 5 MG QD PO
     Route: 048
     Dates: start: 20060501, end: 20060501
  2. NAMENDA [Suspect]
     Indication: DEMENTIA ALZHEIMER'S TYPE
     Dosage: 5 MG BID PO
     Route: 048
     Dates: start: 20060501, end: 20060501
  3. NAMENDA [Suspect]
     Indication: DEMENTIA ALZHEIMER'S TYPE
     Dosage: 15 MG QD PO
     Route: 048
     Dates: start: 20060501, end: 20060501
  4. NAMENDA [Suspect]
     Indication: DEMENTIA ALZHEIMER'S TYPE
     Dosage: 10 MG BID PO
     Route: 048
     Dates: start: 20060501
  5. COREG [Concomitant]
  6. COZAAR [Concomitant]
  7. ZETIA [Concomitant]
  8. ARICEPT [Concomitant]
  9. ENABLEX (DARIFENACIN) [Concomitant]
  10. SPIRONOLACTONE [Concomitant]
  11. VITAMINS NOS [Concomitant]

REACTIONS (2)
  - ASTHENIA [None]
  - FATIGUE [None]
